FAERS Safety Report 10451253 (Version 2)
Quarter: 2014Q3

REPORT INFORMATION
  Report Type: Report from Study
  Country: US (occurrence: US)
  Receive Date: 20140912
  Receipt Date: 20140922
  Transmission Date: 20150326
  Serious: No
  Sender: FDA-Public Use
  Company Number: US-009507513-1409USA005357

PATIENT
  Age: 78 Year
  Sex: Female
  Weight: 89.34 kg

DRUGS (23)
  1. PREDNISONE. [Concomitant]
     Active Substance: PREDNISONE
     Indication: LOCAL SWELLING
     Dosage: 5 MG, QW
     Route: 048
     Dates: start: 20140825
  2. OXYCODONE [Concomitant]
     Active Substance: OXYCODONE
     Indication: ARTHRALGIA
     Dosage: TOTAL DAILY DOSE: 5 MG, PRN
     Route: 048
     Dates: start: 201408
  3. PEMBROLIZUMAB. [Suspect]
     Active Substance: PEMBROLIZUMAB
     Dosage: 10 MG/KG, Q3W, DOSE REPORTED: 100 (UNIT NOT PROVIDED)
     Route: 042
     Dates: start: 20140828, end: 20140828
  4. CLARITIN [Concomitant]
     Active Substance: LORATADINE
     Indication: MUSCULOSKELETAL DISCOMFORT
     Dosage: 10 MG, QD
     Route: 048
     Dates: start: 201407
  5. PREVACID [Concomitant]
     Active Substance: LANSOPRAZOLE
     Indication: PROPHYLAXIS
     Dosage: 20 MG, QD
     Route: 048
     Dates: start: 201404
  6. PEMBROLIZUMAB. [Suspect]
     Active Substance: PEMBROLIZUMAB
     Indication: NON-SMALL CELL LUNG CANCER
     Dosage: 10 MG/KG, Q3W, DOSE REPORTED: 136 (UNIT NOT PROVIDED)
     Route: 042
     Dates: start: 20140717, end: 20140717
  7. PROVENTIL [Concomitant]
     Active Substance: ALBUTEROL
     Indication: ASTHMA
     Dosage: UNK, PRN
     Route: 048
     Dates: start: 201304
  8. KLOR-CON [Concomitant]
     Active Substance: POTASSIUM CHLORIDE
     Indication: BLOOD POTASSIUM DECREASED
     Dosage: 20 MEQ, QD
     Route: 048
     Dates: start: 201308
  9. XARELTO [Concomitant]
     Active Substance: RIVAROXABAN
     Indication: THROMBOSIS PROPHYLAXIS
     Dosage: 20 MG, QD
     Route: 048
     Dates: start: 201403
  10. ZOCOR [Concomitant]
     Active Substance: SIMVASTATIN
     Indication: BLOOD CHOLESTEROL DECREASED
     Dosage: 40 MG, QD
     Route: 048
     Dates: start: 200606
  11. OMEGA-3 MARINE TRIGLYCERIDES [Concomitant]
     Active Substance: FISH OIL
     Indication: PROPHYLAXIS
  12. EFFEXOR XR [Concomitant]
     Active Substance: VENLAFAXINE HYDROCHLORIDE
     Indication: PROPHYLAXIS
     Dosage: 75 MEQ, QD
     Route: 048
     Dates: start: 200404
  13. PREDNISONE. [Concomitant]
     Active Substance: PREDNISONE
     Indication: INFLAMMATION
  14. COZAAR [Concomitant]
     Active Substance: LOSARTAN POTASSIUM
     Indication: HYPERTENSION
     Dosage: 50 MG, QD
     Route: 048
     Dates: start: 201404
  15. AMIODARONE [Concomitant]
     Active Substance: AMIODARONE
     Indication: HYPERTENSION
     Dosage: 200 MG, QD
     Route: 048
     Dates: start: 201404
  16. PEMBROLIZUMAB. [Suspect]
     Active Substance: PEMBROLIZUMAB
     Dosage: 10 MG/KG, Q3W, DOSE REPORTED: 136.12 (UNIT NOT PROVIDED)
     Route: 042
     Dates: start: 20140807, end: 20140807
  17. SYNTHROID [Concomitant]
     Active Substance: LEVOTHYROXINE SODIUM
     Indication: HYPOTHYROIDISM
     Dosage: 88 MG, QD
     Route: 048
     Dates: start: 200403
  18. MEDROL [Concomitant]
     Active Substance: METHYLPREDNISOLONE
     Indication: LOCAL SWELLING
     Dosage: TOTAL DAILY DOSE: 4 MG, FREQUENCY: OTHER
     Route: 048
     Dates: start: 20140815, end: 20140825
  19. TYLENOL [Concomitant]
     Active Substance: ACETAMINOPHEN
     Indication: ARTHRALGIA
     Dosage: TOTAL DAILY DOSE: 1000 MG, PRN
     Route: 048
     Dates: start: 201404
  20. TYLENOL PM [Concomitant]
     Active Substance: ACETAMINOPHEN\DIPHENHYDRAMINE
     Indication: SLEEP DISORDER THERAPY
     Dosage: TOTAL DAILY DOSE: 2 TABLETS, PRN
     Route: 048
     Dates: start: 201404
  21. EFFEXOR XR [Concomitant]
     Active Substance: VENLAFAXINE HYDROCHLORIDE
     Indication: DEPRESSION
  22. ADVAIR HFA [Concomitant]
     Active Substance: FLUTICASONE PROPIONATE\SALMETEROL XINAFOATE
     Indication: ASTHMA
     Dosage: 1 PUFF, PRN
     Route: 055
     Dates: start: 201304
  23. OMEGA-3 MARINE TRIGLYCERIDES [Concomitant]
     Active Substance: FISH OIL
     Indication: ROUTINE HEALTH MAINTENANCE
     Dosage: 700 MG, BID
     Route: 048
     Dates: start: 201404

REACTIONS (1)
  - Infusion related reaction [Recovered/Resolved]

NARRATIVE: CASE EVENT DATE: 20140828
